FAERS Safety Report 5612176-9 (Version None)
Quarter: 2008Q1

REPORT INFORMATION
  Report Type: 
  Country: None (occurrence: None)
  Receive Date: 20080128
  Receipt Date: 20060814
  Transmission Date: 20080703
  Serious: Yes (Disabling)
  Sender: FDA-Public Use
  Company Number: NL01PV06.00033

PATIENT
  Age: 31 Year
  Sex: Female

DRUGS (2)
  1. PAROXETINE [Suspect]
     Indication: DEPRESSION
     Dosage: 20 MG, QD
  2. VENLAFAXINE HCL [Suspect]
     Indication: DEPRESSION
     Dosage: 75 MG, QD

REACTIONS (4)
  - HYPOMANIA [None]
  - IDIOSYNCRATIC DRUG REACTION [None]
  - POTENTIATING DRUG INTERACTION [None]
  - THERAPEUTIC RESPONSE DECREASED [None]
